FAERS Safety Report 7027678-0 (Version None)
Quarter: 2010Q4

REPORT INFORMATION
  Report Type: 
  Country: None (occurrence: None)
  Receive Date: 20101004
  Receipt Date: 20100925
  Transmission Date: 20110411
  Serious: Yes (Hospitalization)
  Sender: FDA-Public Use
  Company Number: GB-WATSON-2010-12918

PATIENT
  Age: 48 Year
  Sex: Female

DRUGS (2)
  1. ERYTHROMYCIN  (WATSON LABORATORIES) [Suspect]
     Indication: LOWER RESPIRATORY TRACT INFECTION
     Dosage: UNK
  2. TACROLIMUS [Suspect]
     Indication: HIRSUTISM
     Dosage: 1 MG, BID

REACTIONS (3)
  - DRUG INTERACTION [None]
  - DRUG LEVEL INCREASED [None]
  - HAEMOLYTIC URAEMIC SYNDROME [None]
